FAERS Safety Report 21454921 (Version 3)
Quarter: 2022Q4

REPORT INFORMATION
  Report Type: Report from Study
  Country: FR (occurrence: FR)
  Receive Date: 20221014
  Receipt Date: 20221207
  Transmission Date: 20230113
  Serious: Yes (Life-Threatening, Hospitalization, Other)
  Sender: FDA-Public Use
  Company Number: FR-BRISTOL-MYERS SQUIBB COMPANY-2022-099705

PATIENT
  Age: 65 Year
  Sex: Male

DRUGS (2)
  1. NIVOLUMAB [Suspect]
     Active Substance: NIVOLUMAB
     Indication: Renal cancer
     Dosage: FREQUENCY:FOR EVERY 3 WEEKS
     Route: 042
     Dates: start: 20220728, end: 20220810
  2. IPILIMUMAB [Suspect]
     Active Substance: IPILIMUMAB
     Indication: Renal cancer
     Dosage: FREQUENCY:FOR EVERY 3 WEEKS
     Route: 042
     Dates: start: 20220728, end: 20220810

REACTIONS (7)
  - Interstitial lung disease [Unknown]
  - Hypercalcaemia [Unknown]
  - Hyperthyroidism [Unknown]
  - Malignant neoplasm progression [Unknown]
  - Tachycardia [Unknown]
  - Candida infection [Unknown]
  - COVID-19 [Unknown]

NARRATIVE: CASE EVENT DATE: 20220810
